FAERS Safety Report 9029000 (Version 1)
Quarter: 2013Q1

REPORT INFORMATION
  Report Type: Spontaneous
  Country: US (occurrence: US)
  Receive Date: 20130123
  Receipt Date: 20130123
  Transmission Date: 20140127
  Serious: Yes (Hospitalization, Other)
  Sender: FDA-Public Use
  Company Number: US-SANOFI-AVENTIS-2013SA001792

PATIENT
  Sex: Female
  Weight: 67 kg

DRUGS (5)
  1. PLAVIX [Suspect]
     Route: 048
     Dates: start: 2002
  2. LEVOXYL [Concomitant]
  3. CHLORTHALIDONE [Concomitant]
  4. COREG [Concomitant]
     Dosage: 3.15 MG QAM AND QHS
  5. COZAAR [Concomitant]
     Dosage: 25 MG 12:00 PM AND 50 MG QHS

REACTIONS (9)
  - Supraventricular extrasystoles [Unknown]
  - Atrial tachycardia [Unknown]
  - Atrial fibrillation [Unknown]
  - Haemorrhage [Unknown]
  - Eye haemorrhage [Unknown]
  - Epistaxis [Unknown]
  - Skin haemorrhage [Recovered/Resolved]
  - Drug effect decreased [Unknown]
  - Epistaxis [Unknown]
